FAERS Safety Report 23622746 (Version 2)
Quarter: 2024Q1

REPORT INFORMATION
  Report Type: Report from Study
  Country: CO (occurrence: CO)
  Receive Date: 20240312
  Receipt Date: 20240313
  Transmission Date: 20240410
  Serious: Yes (Other)
  Sender: FDA-Public Use
  Company Number: CO-002147023-NVSC2024CO032352

PATIENT
  Sex: Female
  Weight: 64 kg

DRUGS (2)
  1. COSENTYX [Suspect]
     Active Substance: SECUKINUMAB
     Indication: Psoriatic arthropathy
     Dosage: 150 MG, QW
     Route: 058
     Dates: start: 20240105
  2. COSENTYX [Suspect]
     Active Substance: SECUKINUMAB
     Dosage: 150 MG, Q2W
     Route: 058
     Dates: end: 20240204

REACTIONS (15)
  - Peritonsillar abscess [Unknown]
  - Pain [Not Recovered/Not Resolved]
  - Nasal congestion [Not Recovered/Not Resolved]
  - Oropharyngeal pain [Not Recovered/Not Resolved]
  - Illness [Unknown]
  - Discomfort [Unknown]
  - Influenza [Unknown]
  - Feeling abnormal [Unknown]
  - Back pain [Not Recovered/Not Resolved]
  - Pain in extremity [Not Recovered/Not Resolved]
  - Dry eye [Unknown]
  - Pharyngitis [Unknown]
  - Infection [Recovered/Resolved]
  - Inappropriate schedule of product administration [Unknown]
  - Drug ineffective [Unknown]
